FAERS Safety Report 20893477 (Version 1)
Quarter: 2022Q2

REPORT INFORMATION
  Report Type: Spontaneous
  Country: US (occurrence: None)
  Receive Date: 20220531
  Receipt Date: 20220531
  Transmission Date: 20220721
  Serious: Yes (Hospitalization, Other)
  Sender: FDA-Public Use
  Company Number: US-MICRO LABS LIMITED-ML2022-02302

PATIENT
  Age: 62 Year
  Sex: Female

DRUGS (9)
  1. BUPROPION [Suspect]
     Active Substance: BUPROPION
  2. FLUOXETINE [Suspect]
     Active Substance: FLUOXETINE HYDROCHLORIDE
  3. PAROXETINE [Suspect]
     Active Substance: PAROXETINE
  4. SERTRALINE [Suspect]
     Active Substance: SERTRALINE HYDROCHLORIDE
  5. DULOXETINE [Suspect]
     Active Substance: DULOXETINE
  6. MIRTAZAPINE [Suspect]
     Active Substance: MIRTAZAPINE
  7. ZOLPIDEM [Suspect]
     Active Substance: ZOLPIDEM TARTRATE
  8. SUVOREXANT [Suspect]
     Active Substance: SUVOREXANT
  9. OLANZAPINE [Suspect]
     Active Substance: OLANZAPINE

REACTIONS (4)
  - Drug ineffective [Unknown]
  - Drug intolerance [Unknown]
  - Anxiety [Recovered/Resolved]
  - Sedation [Recovered/Resolved]
